FAERS Safety Report 4408611-4 (Version None)
Quarter: 2004Q3

REPORT INFORMATION
  Report Type: 
  Country: None (occurrence: None)
  Receive Date: 20040723
  Receipt Date: 20040719
  Transmission Date: 20050211
  Serious: Yes (Death)
  Sender: FDA-Public Use
  Company Number: 2004-118608-NL

PATIENT
  Age: 30 Year
  Sex: Male

DRUGS (3)
  1. MIRTAZAPINE [Suspect]
     Dosage: 15 MG ORAL
     Route: 048
  2. ZOPICLONE [Suspect]
     Dosage: 7.5 MG ORAL
     Route: 048
  3. LORAZEPAM [Suspect]
     Dosage: 1 MG

REACTIONS (3)
  - COMPLETED SUICIDE [None]
  - INJURY ASPHYXIATION [None]
  - OVERDOSE [None]
